FAERS Safety Report 9031847 (Version 1)
Quarter: 2013Q1

REPORT INFORMATION
  Report Type: Spontaneous
  Country: US (occurrence: US)
  Receive Date: 20130124
  Receipt Date: 20130124
  Transmission Date: 20140127
  Serious: Yes (Other)
  Sender: FDA-Public Use
  Company Number: US-BAYER-2013-007387

PATIENT
  Sex: 0

DRUGS (1)
  1. BACTINE PAIN RELIEVING CLEANSING ANESTHETIC SPRAY [Suspect]

REACTIONS (1)
  - Infection [None]
